FAERS Safety Report 6093043-6 (Version None)
Quarter: 2009Q1

REPORT INFORMATION
  Report Type: 
  Country: None (occurrence: None)
  Receive Date: 20090224
  Receipt Date: 20090217
  Transmission Date: 20090719
  Serious: No
  Sender: FDA-Public Use
  Company Number: 2006JP004467

PATIENT
  Age: 3 Year
  Sex: Male
  Weight: 12 kg

DRUGS (1)
  1. PROTOPIC [Suspect]
     Indication: DERMATITIS ATOPIC
     Dosage: 0.03%, TOPICAL
     Route: 061

REACTIONS (3)
  - IMPETIGO [None]
  - MOLLUSCUM CONTAGIOSUM [None]
  - SKIN PAPILLOMA [None]
